FAERS Safety Report 21157776 (Version 1)
Quarter: 2022Q3

REPORT INFORMATION
  Report Type: Spontaneous
  Country: US (occurrence: None)
  Receive Date: 20220731
  Receipt Date: 20220731
  Transmission Date: 20221027
  Serious: Yes (Disabling)
  Sender: FDA-Public Use
  Company Number: None

PATIENT
  Age: 40 Year
  Sex: Female
  Weight: 55.35 kg

DRUGS (1)
  1. ALBA BOTANICA MINERAL SPORT FF SUNSCREEN SPF45 [Suspect]
     Active Substance: TITANIUM DIOXIDE\ZINC OXIDE
     Indication: Prophylaxis against solar radiation
     Dosage: OTHER FREQUENCY  APPLY: EVERY 80 MINUTES;?
     Route: 061
     Dates: start: 20220725, end: 20220731

REACTIONS (6)
  - Eye irritation [None]
  - Rhinorrhoea [None]
  - Visual impairment [None]
  - Insomnia [None]
  - Skin burning sensation [None]
  - Wrong technique in product usage process [None]

NARRATIVE: CASE EVENT DATE: 20220731
